FAERS Safety Report 7046975-6 (Version None)
Quarter: 2010Q4

REPORT INFORMATION
  Report Type: 
  Country: None (occurrence: None)
  Receive Date: 20101015
  Receipt Date: 20101013
  Transmission Date: 20110411
  Serious: Yes (Other)
  Sender: FDA-Public Use
  Company Number: DE-JNJFOC-20101003954

PATIENT
  Sex: Female

DRUGS (1)
  1. CAELYX [Suspect]
     Indication: BREAST CANCER METASTATIC
     Route: 042

REACTIONS (1)
  - PULMONARY FIBROSIS [None]
